FAERS Safety Report 5166797-0 (Version None)
Quarter: 2006Q4

REPORT INFORMATION
  Report Type: 
  Country: None (occurrence: None)
  Receive Date: 20061129
  Receipt Date: 20061116
  Transmission Date: 20070319
  Serious: Yes (Hospitalization)
  Sender: FDA-Public Use
  Company Number: FABR-11746

PATIENT
  Age: 37 Year
  Sex: Male

DRUGS (2)
  1. FABRAZYME [Suspect]
     Indication: FABRY'S DISEASE
     Dates: start: 20010501
  2. UNSPECIFIED ANTIHYPERTENSIVE [Concomitant]

REACTIONS (7)
  - DEAFNESS NEUROSENSORY [None]
  - DIALYSIS [None]
  - DIZZINESS [None]
  - HYPERTENSION [None]
  - ILL-DEFINED DISORDER [None]
  - RENAL FAILURE CHRONIC [None]
  - TREATMENT NONCOMPLIANCE [None]
